FAERS Safety Report 21553446 (Version 1)
Quarter: 2022Q4

REPORT INFORMATION
  Report Type: Spontaneous
  Country: DK (occurrence: DK)
  Receive Date: 20221104
  Receipt Date: 20221104
  Transmission Date: 20230113
  Serious: Yes (Other)
  Sender: FDA-Public Use
  Company Number: None

PATIENT
  Age: 30 Year
  Sex: Female

DRUGS (3)
  1. ENBREL [Suspect]
     Active Substance: ETANERCEPT
     Indication: Arthritis enteropathic
     Dosage: UNK
     Route: 065
     Dates: start: 201707, end: 20180508
  2. ENBREL [Suspect]
     Active Substance: ETANERCEPT
     Dosage: UNK
     Route: 065
     Dates: start: 20181204
  3. HUMIRA [Suspect]
     Active Substance: ADALIMUMAB
     Indication: Arthritis enteropathic
     Dosage: DOSAGE: 40 MG ADMINISTERED 04JUL2018, 26JUL2018, EARLY AUG2018 AND 15AUG2018. STRENGTH: UNKNOWN
     Route: 065
     Dates: start: 20180704, end: 20180815

REACTIONS (18)
  - Abdominal pain [Recovered/Resolved]
  - Palpitations [Unknown]
  - Frequent bowel movements [Recovered/Resolved]
  - Hyperthyroidism [Recovered/Resolved]
  - Tremor [Unknown]
  - Myalgia [Recovered/Resolved]
  - Restlessness [Recovered/Resolved]
  - Hyperhidrosis [Unknown]
  - Thyroiditis [Unknown]
  - Dizziness [Recovered/Resolved]
  - Nausea [Recovered/Resolved]
  - Temperature intolerance [Recovered/Resolved]
  - Feeling hot [Recovered/Resolved]
  - Arthralgia [Recovered/Resolved]
  - Diarrhoea [Recovered/Resolved]
  - Fatigue [Recovered/Resolved]
  - Pyrexia [Recovered/Resolved]
  - Off label use [Unknown]

NARRATIVE: CASE EVENT DATE: 20180101
